FAERS Safety Report 9921318 (Version 1)
Quarter: 2014Q1

REPORT INFORMATION
  Report Type: Spontaneous
  Country: CN (occurrence: CN)
  Receive Date: 20140225
  Receipt Date: 20140225
  Transmission Date: 20141002
  Serious: Yes (Death)
  Sender: FDA-Public Use
  Company Number: PHHY2014CN021977

PATIENT
  Sex: Female

DRUGS (4)
  1. NILOTINIB [Suspect]
     Indication: GASTROINTESTINAL STROMAL TUMOUR
  2. NILOTINIB [Suspect]
     Indication: OFF LABEL USE
  3. IMATINIB [Suspect]
     Indication: GASTROINTESTINAL STROMAL TUMOUR
  4. IMATINIB [Suspect]
     Indication: OFF LABEL USE

REACTIONS (5)
  - Multi-organ failure [Fatal]
  - Gastrointestinal stromal tumour [Fatal]
  - Malignant neoplasm progression [Fatal]
  - Chest discomfort [Unknown]
  - Palpitations [Unknown]
